FAERS Safety Report 16948790 (Version 1)
Quarter: 2019Q4

REPORT INFORMATION
  Report Type: Spontaneous
  Country: US (occurrence: US)
  Receive Date: 20191023
  Receipt Date: 20191023
  Transmission Date: 20200122
  Serious: Yes (Hospitalization, Other)
  Sender: FDA-Public Use
  Company Number: US-NAPPMUNDI-USA-2019-0148067

PATIENT
  Sex: Female

DRUGS (2)
  1. OXYCONTIN [Suspect]
     Active Substance: OXYCODONE HYDROCHLORIDE
     Indication: PAIN
     Route: 048
  2. PERCOCET [Suspect]
     Active Substance: ACETAMINOPHEN\OXYCODONE HYDROCHLORIDE
     Indication: PAIN
     Route: 065

REACTIONS (7)
  - Drug abuse [Recovering/Resolving]
  - Suicide attempt [Unknown]
  - Drug tolerance increased [Unknown]
  - Antisocial behaviour [Unknown]
  - Overdose [Unknown]
  - Drug dependence [Recovering/Resolving]
  - Paranoia [Unknown]

NARRATIVE: CASE EVENT DATE: 201612
